FAERS Safety Report 5063073-1 (Version None)
Quarter: 2006Q3

REPORT INFORMATION
  Report Type: 
  Country: None (occurrence: None)
  Receive Date: 20060724
  Receipt Date: 20060711
  Transmission Date: 20061208
  Serious: Yes (Other)
  Sender: FDA-Public Use
  Company Number: HQWYE892313JUL06

PATIENT
  Sex: Female

DRUGS (3)
  1. PREMPRO [Suspect]
     Dosage: 36 MOS. (3 YEARS)
     Dates: start: 19970101, end: 20001101
  2. PREMARIN [Suspect]
  3. PROGESTERONE [Suspect]

REACTIONS (1)
  - BREAST CANCER FEMALE [None]
